FAERS Safety Report 4654500-X (Version None)
Quarter: 2005Q2

REPORT INFORMATION
  Report Type: 
  Country: None (occurrence: None)
  Receive Date: 20050404
  Receipt Date: 20041208
  Transmission Date: 20051028
  Serious: No
  Sender: FDA-Public Use
  Company Number: USA041285639

PATIENT
  Age: 52 Year
  Weight: 55 kg

DRUGS (3)
  1. CYMBALTA [Suspect]
     Indication: NEUROPATHY
     Dosage: 120 MG AT BEDTIME
     Dates: start: 20041001, end: 20041208
  2. VALIUM [Concomitant]
  3. TRAMADOL HCL [Concomitant]

REACTIONS (2)
  - CONFUSIONAL STATE [None]
  - PRESCRIBED OVERDOSE [None]
